FAERS Safety Report 23346056 (Version 1)
Quarter: 2023Q4

REPORT INFORMATION
  Report Type: Spontaneous
  Country: US (occurrence: None)
  Receive Date: 20231227
  Receipt Date: 20231227
  Transmission Date: 20240110
  Serious: Yes (unspecified)
  Sender: FDA-Public Use
  Company Number: None

PATIENT
  Age: 94 Year
  Sex: Female
  Weight: 45 kg

DRUGS (1)
  1. CENEGERMIN-BKBJ [Suspect]
     Active Substance: CENEGERMIN-BKBJ
     Indication: Neurotrophic keratopathy
     Dosage: 1  GTT DROP (S)  EVERY 2 HOURS OPTHALMIC
     Route: 047
     Dates: start: 20231121, end: 20231207

REACTIONS (1)
  - Keratopathy [None]

NARRATIVE: CASE EVENT DATE: 20231121
